FAERS Safety Report 4373760-6 (Version None)
Quarter: 2004Q2

REPORT INFORMATION
  Report Type: 
  Country: None (occurrence: None)
  Receive Date: 20040607
  Receipt Date: 20040607
  Transmission Date: 20050107
  Serious: No
  Sender: FDA-Public Use
  Company Number: None

PATIENT
  Age: 32 Year
  Sex: Male
  Weight: 105 kg

DRUGS (16)
  1. PANCURONIUM [Suspect]
     Indication: PARALYSIS
     Dosage: 5 MG+10 MG EACH TIMES IV
     Route: 042
     Dates: start: 20040603, end: 20040603
  2. PANCURONIUM [Suspect]
     Indication: THERAPEUTIC PROCEDURE
     Dosage: 5 MG+10 MG EACH TIMES IV
     Route: 042
     Dates: start: 20040603, end: 20040603
  3. ALBUTEIN [Concomitant]
  4. AMLODIPINE [Concomitant]
  5. DEXAMETHASONE [Concomitant]
  6. VANCOMYCIN [Concomitant]
  7. CEREBYX [Concomitant]
  8. LEVOFLOXACIN [Concomitant]
  9. LISINOPRIL [Concomitant]
  10. METOPROLOL TARTRATE [Concomitant]
  11. NIMODIPINE [Concomitant]
  12. PANTOPRAZOLE [Concomitant]
  13. INSULIN DRIP [Concomitant]
  14. PROPOFOL [Concomitant]
  15. LORAZEPAM DRIP [Concomitant]
  16. ISOFLURANE GAS [Concomitant]

REACTIONS (2)
  - DRUG INEFFECTIVE [None]
  - PHARMACEUTICAL PRODUCT COMPLAINT [None]
